FAERS Safety Report 8249782-1 (Version None)
Quarter: 2012Q2

REPORT INFORMATION
  Report Type: 
  Country: None (occurrence: None)
  Receive Date: 20120402
  Receipt Date: 20120321
  Transmission Date: 20120825
  Serious: Yes (Hospitalization, Other)
  Sender: FDA-Public Use
  Company Number: PHHY2011US10256

PATIENT
  Sex: Male

DRUGS (1)
  1. GLEEVEC [Suspect]
     Indication: ACUTE MYELOID LEUKAEMIA (IN REMISSION)
     Dosage: 400 MG, QD
     Route: 048

REACTIONS (5)
  - RENAL DISORDER [None]
  - BLADDER DISORDER [None]
  - PERIPHERAL ARTERIAL OCCLUSIVE DISEASE [None]
  - GRAFT VERSUS HOST DISEASE [None]
  - FOOT AMPUTATION [None]
